FAERS Safety Report 14899208 (Version 1)
Quarter: 2018Q2

REPORT INFORMATION
  Report Type: Spontaneous
  Country: FR (occurrence: FR)
  Receive Date: 20180516
  Receipt Date: 20180516
  Transmission Date: 20180711
  Serious: Yes (Other)
  Sender: FDA-Public Use
  Company Number: FR-MERCK KGAA-2047856

PATIENT
  Age: 62 Year
  Sex: Female

DRUGS (1)
  1. NOVOTHYROX [Suspect]
     Active Substance: LEVOTHYROXINE SODIUM
     Indication: HYPOTHYROIDISM
     Dates: start: 201705, end: 201709

REACTIONS (24)
  - Weight increased [Recovering/Resolving]
  - Dizziness [None]
  - Social problem [None]
  - Loss of personal independence in daily activities [None]
  - Irritability [Recovering/Resolving]
  - Reading disorder [None]
  - Hypermetropia [Recovering/Resolving]
  - Personal relationship issue [None]
  - Insomnia [None]
  - Nausea [None]
  - Pain [None]
  - Hyperaesthesia [None]
  - Fatigue [None]
  - Alopecia [Recovering/Resolving]
  - Arrhythmia [None]
  - Disturbance in attention [None]
  - Migraine [None]
  - Monocyte count increased [None]
  - Hypokinesia [None]
  - Diarrhoea [Recovering/Resolving]
  - Headache [Recovering/Resolving]
  - Muscle spasms [Recovering/Resolving]
  - Loss of libido [None]
  - Depression [None]

NARRATIVE: CASE EVENT DATE: 2017
